FAERS Safety Report 11572953 (Version 1)
Quarter: 2015Q3

REPORT INFORMATION
  Report Type: Report from Study
  Country: US (occurrence: US)
  Receive Date: 20150929
  Receipt Date: 20150929
  Transmission Date: 20151125
  Serious: Yes (Death, Other)
  Sender: FDA-Public Use
  Company Number: US-TAKEDA-2015MPI006367

PATIENT
  Age: 64 Year
  Sex: Female

DRUGS (3)
  1. VELCADE [Suspect]
     Active Substance: BORTEZOMIB
     Indication: PLASMA CELL MYELOMA
     Dosage: 2.2 MG, 1/WEEK
     Route: 042
     Dates: start: 20141220
  2. MORPHINE [Concomitant]
     Active Substance: MORPHINE
     Dosage: UNK
  3. VELCADE [Suspect]
     Active Substance: BORTEZOMIB
     Dosage: 22 MG, UNK
     Route: 042
     Dates: start: 20141229

REACTIONS (6)
  - Respiratory disorder [Fatal]
  - Renal failure [Fatal]
  - Pneumonia aspiration [Fatal]
  - Back pain [Fatal]
  - Encephalopathy [Fatal]
  - Pancytopenia [Fatal]

NARRATIVE: CASE EVENT DATE: 20150923
